FAERS Safety Report 18140272 (Version 1)
Quarter: 2020Q3

REPORT INFORMATION
  Report Type: Other
  Country: TR (occurrence: TR)
  Receive Date: 20200812
  Receipt Date: 20200812
  Transmission Date: 20201103
  Serious: Yes (Death, Hospitalization)
  Sender: FDA-Public Use
  Company Number: TR-EMD SERONO-9178873

PATIENT
  Age: 33 Year
  Sex: Female

DRUGS (2)
  1. METFORMIN [Suspect]
     Active Substance: METFORMIN HYDROCHLORIDE
     Indication: TYPE 2 DIABETES MELLITUS
     Dosage: UNKNOWN DOSE
  2. METFORMIN [Suspect]
     Active Substance: METFORMIN HYDROCHLORIDE
     Dosage: (0.4 GRAM/KG TOTAL)

REACTIONS (10)
  - Lactic acidosis [Fatal]
  - Nausea [Unknown]
  - Intentional overdose [Fatal]
  - Vomiting [Unknown]
  - Suicide attempt [Fatal]
  - Metabolic acidosis [Fatal]
  - Respiratory failure [Fatal]
  - Cardiac arrest [Fatal]
  - Acute kidney injury [Fatal]
  - Toxicity to various agents [Fatal]
